FAERS Safety Report 24316350 (Version 2)
Quarter: 2024Q4

REPORT INFORMATION
  Report Type: Report from Study
  Country: EG (occurrence: EG)
  Receive Date: 20240913
  Receipt Date: 20241023
  Transmission Date: 20250115
  Serious: Yes (Death, Other)
  Sender: PFIZER
  Company Number: EG-TAKEDA-2024TUS090513

PATIENT
  Age: 47 Year
  Sex: Female

DRUGS (1)
  1. ADCETRIS [Suspect]
     Active Substance: BRENTUXIMAB VEDOTIN
     Indication: Cutaneous T-cell lymphoma
     Dosage: UNK UNK, Q3WEEKS
     Route: 042
     Dates: start: 20240727, end: 20240727

REACTIONS (2)
  - Gangrene [Fatal]
  - Cutaneous T-cell lymphoma [Fatal]
